FAERS Safety Report 20361723 (Version 1)
Quarter: 2022Q1

REPORT INFORMATION
  Report Type: Spontaneous
  Country: US (occurrence: None)
  Receive Date: 20220120
  Receipt Date: 20220120
  Transmission Date: 20220423
  Serious: Yes (Disabling, Other)
  Sender: FDA-Public Use
  Company Number: None

PATIENT
  Age: 51 Year
  Sex: Female
  Weight: 81 kg

DRUGS (12)
  1. REPATHA [Suspect]
     Active Substance: EVOLOCUMAB
     Indication: Cardiovascular disorder
     Dosage: OTHER QUANTITY : 1 INJECTION(S);?OTHER FREQUENCY : BI WEEKLY;?
     Route: 030
     Dates: start: 20210401, end: 20211209
  2. ASPIRIN [Concomitant]
     Active Substance: ASPIRIN
  3. LOVASTATIN [Concomitant]
     Active Substance: LOVASTATIN
  4. MESTINON [Concomitant]
     Active Substance: PYRIDOSTIGMINE BROMIDE
  5. NEXIUM [Concomitant]
     Active Substance: ESOMEPRAZOLE MAGNESIUM
  6. NORTRIPTYLINE [Concomitant]
     Active Substance: NORTRIPTYLINE
  7. RANEXA [Concomitant]
     Active Substance: RANOLAZINE
  8. Repatha-Sureclick [Concomitant]
  9. VITAMIN C [Concomitant]
     Active Substance: ASCORBIC ACID
  10. VITAMIN D [Concomitant]
     Active Substance: VITAMIN D NOS
  11. MAGNESIUM [Concomitant]
     Active Substance: MAGNESIUM
  12. IRON [Concomitant]
     Active Substance: IRON

REACTIONS (4)
  - Muscular weakness [None]
  - Feeling abnormal [None]
  - Depression [None]
  - Therapy cessation [None]

NARRATIVE: CASE EVENT DATE: 20211124
